FAERS Safety Report 6101490-9 (Version None)
Quarter: 2009Q1

REPORT INFORMATION
  Report Type: 
  Country: None (occurrence: None)
  Receive Date: 20090303
  Receipt Date: 20090303
  Transmission Date: 20090719
  Serious: Yes (Other)
  Sender: FDA-Public Use
  Company Number: None

PATIENT
  Age: 70 Year
  Sex: Male
  Weight: 158.759 kg

DRUGS (1)
  1. BENICAR [Suspect]
     Indication: BLOOD PRESSURE
     Dosage: 20 MG ONCE PER DAY PO
     Route: 048
     Dates: start: 20090217, end: 20090219

REACTIONS (4)
  - EYELID PTOSIS [None]
  - MUSCLE FATIGUE [None]
  - MUSCULOSKELETAL PAIN [None]
  - NECK PAIN [None]
